FAERS Safety Report 5027920-1 (Version None)
Quarter: 2006Q2

REPORT INFORMATION
  Report Type: 
  Country: None (occurrence: None)
  Receive Date: 20060501
  Receipt Date: 20060310
  Transmission Date: 20061013
  Serious: Yes (Other)
  Sender: FDA-Public Use
  Company Number: 200612281US

PATIENT
  Age: 53 Year
  Sex: Female

DRUGS (3)
  1. KETEK [Suspect]
     Indication: BRONCHITIS
     Dosage: 400 MG QD PO
     Route: 048
     Dates: start: 20060106, end: 20060110
  2. LIPITOR [Concomitant]
  3. CYMBALTA [Concomitant]

REACTIONS (2)
  - ALANINE AMINOTRANSFERASE INCREASED [None]
  - ASPARTATE AMINOTRANSFERASE INCREASED [None]
